FAERS Safety Report 10435888 (Version 1)
Quarter: 2014Q3

REPORT INFORMATION
  Report Type: Spontaneous
  Country: US (occurrence: US)
  Receive Date: 20140908
  Receipt Date: 20140908
  Transmission Date: 20150326
  Serious: No
  Sender: FDA-Public Use
  Company Number: US-GLAXOSMITHKLINE-A1074962A

PATIENT
  Sex: Female

DRUGS (2)
  1. BREO ELLIPTA [Suspect]
     Active Substance: FLUTICASONE FUROATE\VILANTEROL TRIFENATATE
     Dosage: 1PUFF TWICE PER DAY
     Route: 055
     Dates: start: 20140528
  2. NO CONCURRENT MEDICATION [Concomitant]
     Active Substance: UNSPECIFIED INGREDIENT

REACTIONS (2)
  - Prescribed overdose [Unknown]
  - Malaise [Unknown]

NARRATIVE: CASE EVENT DATE: 20140528
